FAERS Safety Report 11452992 (Version 1)
Quarter: 2015Q3

REPORT INFORMATION
  Report Type: Spontaneous
  Country: US (occurrence: US)
  Receive Date: 20150903
  Receipt Date: 20150903
  Transmission Date: 20151125
  Serious: No
  Sender: FDA-Public Use
  Company Number: US-ROCHE-1039020

PATIENT
  Sex: Male
  Weight: 71.73 kg

DRUGS (2)
  1. RIBAVIRIN. [Suspect]
     Active Substance: RIBAVIRIN
     Indication: CHRONIC HEPATITIS C
     Route: 048
  2. PEGASYS [Suspect]
     Active Substance: PEGINTERFERON ALFA-2A
     Indication: CHRONIC HEPATITIS C
     Route: 058

REACTIONS (12)
  - Pain [Unknown]
  - Hypoaesthesia [Unknown]
  - Feeling abnormal [Unknown]
  - Paraesthesia [Unknown]
  - Dyspnoea [Recovered/Resolved]
  - Haemoptysis [Unknown]
  - Pneumonia [Unknown]
  - Pyrexia [Unknown]
  - Influenza like illness [Recovered/Resolved]
  - Weight decreased [Unknown]
  - Nasal congestion [Unknown]
  - Crying [Unknown]
